FAERS Safety Report 11314169 (Version 1)
Quarter: 2015Q3

REPORT INFORMATION
  Report Type: Spontaneous
  Country: US (occurrence: US)
  Receive Date: 20150727
  Receipt Date: 20150727
  Transmission Date: 20151125
  Serious: Yes (Other)
  Sender: FDA-Public Use
  Company Number: US-SHIRE-US201508336

PATIENT
  Age: 22 Year
  Sex: Female
  Weight: 54.42 kg

DRUGS (9)
  1. ADDERALL XR [Suspect]
     Active Substance: AMPHETAMINE ASPARTATE\AMPHETAMINE SULFATE\DEXTROAMPHETAMINE SACCHARATE\DEXTROAMPHETAMINE SULFATE
     Indication: DISTURBANCE IN ATTENTION
     Dosage: UNK, UNKNOWN
     Route: 048
     Dates: start: 2015, end: 2015
  2. LINZESS [Concomitant]
     Active Substance: LINACLOTIDE
     Indication: CONSTIPATION
     Dosage: 290 ?G, AS REQ^D, AS NEEDED
     Route: 065
  3. DEXTROAMPHET SACCHARAT, AMPHET ASPARTATE, DEXTROAMPHET SULFATE AND AMPHET SULFAT [Suspect]
     Active Substance: AMPHETAMINE ASPARTATE\AMPHETAMINE SULFATE\DEXTROAMPHETAMINE SACCHARATE\DEXTROAMPHETAMINE SULFATE
     Indication: LAXATIVE SUPPORTIVE CARE
     Dosage: UNK, UNKNOWN
     Route: 065
     Dates: start: 2015, end: 2015
  4. VITAMIN D2 [Concomitant]
     Active Substance: ERGOCALCIFEROL
     Indication: OSTEOPENIA
     Dosage: 50000 IU, 1X/WEEK
     Route: 065
     Dates: start: 2014
  5. ADDERALL XR [Suspect]
     Active Substance: AMPHETAMINE ASPARTATE\AMPHETAMINE SULFATE\DEXTROAMPHETAMINE SACCHARATE\DEXTROAMPHETAMINE SULFATE
     Indication: LAXATIVE SUPPORTIVE CARE
     Dosage: 30 MG, UNKNOWN
     Route: 048
     Dates: start: 2015
  6. GOLYTELY [Concomitant]
     Active Substance: POLYETHYLENE GLYCOL 3350\POTASSIUM CHLORIDE\SODIUM BICARBONATE\SODIUM CHLORIDE\SODIUM SULFATE ANHYDROUS
     Indication: CONSTIPATION
     Dosage: 2 DF, OTHER, 2 CUPS SEVERAL DAYS PER WEEK
     Route: 048
  7. OXYCODONE [Concomitant]
     Active Substance: OXYCODONE
     Indication: PROCEDURAL PAIN
     Dosage: 4 MG, AS REQ^D
     Route: 065
  8. DILAUDID [Concomitant]
     Active Substance: HYDROMORPHONE HYDROCHLORIDE
     Indication: PROCEDURAL PAIN
     Dosage: 2 MG, AS REQ^D, AS NEEDED
     Route: 065
  9. ZOFRAN [Concomitant]
     Active Substance: ONDANSETRON HYDROCHLORIDE
     Indication: NAUSEA
     Dosage: 4 MG, AS REQ^D
     Route: 065

REACTIONS (11)
  - Fall [Recovered/Resolved]
  - Therapeutic response unexpected [Not Recovered/Not Resolved]
  - Humerus fracture [Unknown]
  - Product use issue [Not Recovered/Not Resolved]
  - Fistula [Recovered/Resolved]
  - Decreased appetite [Unknown]
  - Drug diversion [Recovered/Resolved]
  - Inappropriate schedule of drug administration [Not Recovered/Not Resolved]
  - Drug ineffective for unapproved indication [Recovered/Resolved]
  - Weight decreased [Not Recovered/Not Resolved]
  - Prescribed overdose [Not Recovered/Not Resolved]

NARRATIVE: CASE EVENT DATE: 2015
